FAERS Safety Report 4620921-4 (Version None)
Quarter: 2005Q1

REPORT INFORMATION
  Report Type: 
  Country: None (occurrence: None)
  Receive Date: 20050325
  Receipt Date: 20050311
  Transmission Date: 20050727
  Serious: Yes (Hospitalization, Other)
  Sender: FDA-Public Use
  Company Number: HQWYE332902APR04

PATIENT
  Age: 23 Year
  Sex: Female

DRUGS (6)
  1. EUPANTOL (PANTOPRAZOLE, INJECTION) [Suspect]
     Dosage: 40 MG 1X PER 1 DAY INTRAVENOUS
     Route: 042
     Dates: start: 20031124, end: 20031204
  2. CALCIPARINE [Suspect]
     Dosage: SC
     Route: 058
     Dates: start: 20031205, end: 20031215
  3. MERONEM (MEROPENEM,) [Suspect]
     Dosage: 2.45 G 1X PER 1 DAY INTRAVENOUS
     Route: 042
     Dates: start: 20031124, end: 20031206
  4. LEVOFLOXACIN [Suspect]
     Indication: INFECTION
     Dosage: 125 MG 1X PER 1 DAY INTRAVENOUS
     Route: 042
     Dates: start: 20031124, end: 20031206
  5. FLUCONAZOLE [Suspect]
     Dosage: 400 MG 1X PER 1 DAY INTRAVENOUS
     Route: 042
     Dates: start: 20031124, end: 20031206
  6. VANCOMYCIN [Suspect]
     Dosage: 1 G 1X PER 1 DAY INTRAVENOUS
     Route: 042
     Dates: start: 20031124, end: 20031206

REACTIONS (10)
  - AGRANULOCYTOSIS [None]
  - AORTIC VALVE DISEASE [None]
  - DISTURBANCE IN ATTENTION [None]
  - HEPARIN-INDUCED THROMBOCYTOPENIA [None]
  - HISTIOCYTOSIS HAEMATOPHAGIC [None]
  - LEUKOPENIA [None]
  - MULTI-ORGAN FAILURE [None]
  - NERVOUS SYSTEM DISORDER [None]
  - SYSTEMIC LUPUS ERYTHEMATOSUS [None]
  - THROMBOCYTOPENIA [None]
